FAERS Safety Report 7483614-4 (Version None)
Quarter: 2011Q2

REPORT INFORMATION
  Report Type: 
  Country: None (occurrence: None)
  Receive Date: 20110517
  Receipt Date: 20110512
  Transmission Date: 20111010
  Serious: Yes (Other)
  Sender: FDA-Public Use
  Company Number: US-PFIZER INC-2011103556

PATIENT
  Sex: Male
  Weight: 95.238 kg

DRUGS (2)
  1. XANAX [Concomitant]
     Indication: ANXIETY
     Dosage: 0.5 MG, AS NEEDED
     Route: 048
     Dates: start: 20110101
  2. CHANTIX [Suspect]
     Indication: SMOKING CESSATION THERAPY
     Dosage: CUTTING 1 MG TABLET INTO HALF
     Route: 048
     Dates: start: 20110501, end: 20110511

REACTIONS (2)
  - FEELING ABNORMAL [None]
  - DEPRESSION [None]
